FAERS Safety Report 6087899-0 (Version None)
Quarter: 2009Q1

REPORT INFORMATION
  Report Type: 
  Country: None (occurrence: None)
  Receive Date: 20090223
  Receipt Date: 20081217
  Transmission Date: 20090719
  Serious: No
  Sender: FDA-Public Use
  Company Number: US-B.I. PHARMACEUTICALS,INC./RIDGEFIELD-2008-BP-18992BP

PATIENT
  Sex: Male

DRUGS (3)
  1. COMBIVENT [Suspect]
     Indication: EMPHYSEMA
     Route: 055
     Dates: start: 20081210
  2. DIAZEPAM [Concomitant]
     Indication: ANXIETY
  3. CLONIDINE [Concomitant]
     Indication: HYPERTENSION
     Dosage: .1MG

REACTIONS (2)
  - SWELLING FACE [None]
  - TONGUE DISCOLOURATION [None]
